FAERS Safety Report 7716751-7 (Version None)
Quarter: 2011Q3

REPORT INFORMATION
  Report Type: 
  Country: None (occurrence: None)
  Receive Date: 20110829
  Receipt Date: 20110818
  Transmission Date: 20111222
  Serious: Yes (Hospitalization)
  Sender: FDA-Public Use
  Company Number: FR-ASTRAZENECA-2011SE49760

PATIENT
  Age: 18225 Day
  Sex: Female

DRUGS (4)
  1. NEO-MERCAZOLE TAB [Concomitant]
     Indication: HYPERTHYROIDISM
     Route: 048
     Dates: start: 20101013
  2. XANAX [Concomitant]
  3. TENORMIN [Suspect]
     Route: 048
     Dates: start: 20101001, end: 20101015
  4. ATACAND [Concomitant]
     Route: 048

REACTIONS (2)
  - OEDEMA PERIPHERAL [None]
  - GENERALISED ERYTHEMA [None]
